FAERS Safety Report 13797050 (Version 2)
Quarter: 2017Q3

REPORT INFORMATION
  Report Type: Spontaneous
  Country: US (occurrence: US)
  Receive Date: 20170727
  Receipt Date: 20170804
  Transmission Date: 20171127
  Serious: No
  Sender: FDA-Public Use
  Company Number: US-AMGEN-USASP2017110200

PATIENT
  Age: 22 Year
  Sex: Male

DRUGS (1)
  1. ENBREL [Suspect]
     Active Substance: ETANERCEPT
     Indication: PSORIASIS
     Dosage: 50 MG, QWK
     Route: 058
     Dates: start: 20161014

REACTIONS (6)
  - Nervousness [Unknown]
  - Wrong technique in product usage process [Unknown]
  - Underdose [Unknown]
  - Injection site haemorrhage [Unknown]
  - Injection site reaction [Unknown]
  - Fear of injection [Unknown]

NARRATIVE: CASE EVENT DATE: 201707
